FAERS Safety Report 9853247 (Version 2)
Quarter: 2014Q2

REPORT INFORMATION
  Report Type: Spontaneous
  Country: GB (occurrence: GB)
  Receive Date: 20140129
  Receipt Date: 20140403
  Transmission Date: 20141212
  Serious: Yes (Death, Hospitalization)
  Sender: FDA-Public Use
  Company Number: GB-ACTAVIS-2014-00841

PATIENT
  Age: 72 Year
  Sex: Male
  Weight: 74 kg

DRUGS (15)
  1. PARACETAMOL  (UNKNOWN) [Suspect]
     Indication: GOUT
     Dosage: 1 G, Q6H; 16 TOTAL; 16 GRAMS RECEIVED. 1 GRAM 6-HOURLY BY MOUTH
     Route: 048
     Dates: start: 20130822, end: 20130828
  2. TAZOCIN [Suspect]
     Indication: URINARY TRACT INFECTION
     Dosage: 4.5 G, Q8H; 10  TOTAL; 10 DOSES GIVEN. 4.5 G 8-HOURLY
     Route: 042
     Dates: start: 20130822, end: 20130828
  3. WARFARIN [Concomitant]
     Indication: ANTICOAGULANT THERAPY
     Dosage: UNK
     Route: 065
  4. FUROSEMIDE [Concomitant]
     Indication: PRODUCT USED FOR UNKNOWN INDICATION
     Dosage: UNK
     Route: 065
  5. SPIRONOLACTONE [Concomitant]
     Indication: PRODUCT USED FOR UNKNOWN INDICATION
     Dosage: UNK
     Route: 065
  6. DIGOXIN [Concomitant]
     Indication: PRODUCT USED FOR UNKNOWN INDICATION
     Dosage: UNK
     Route: 065
  7. BISOPROLOL [Concomitant]
     Indication: PRODUCT USED FOR UNKNOWN INDICATION
     Dosage: UNK
     Route: 065
  8. CANDESARTAN [Concomitant]
     Indication: PRODUCT USED FOR UNKNOWN INDICATION
     Dosage: UNK
     Route: 065
  9. PRAVASTATIN [Concomitant]
     Indication: PRODUCT USED FOR UNKNOWN INDICATION
     Dosage: UNK
     Route: 065
  10. TAMSULOSIN [Concomitant]
     Indication: PRODUCT USED FOR UNKNOWN INDICATION
     Dosage: UNK
     Route: 065
  11. FINASTERIDE [Concomitant]
     Indication: PRODUCT USED FOR UNKNOWN INDICATION
     Dosage: UNK
     Route: 065
  12. COLCHICINE [Concomitant]
     Indication: GOUT
     Dosage: UNK
     Route: 065
  13. ALLOPURINOL [Concomitant]
     Indication: GOUT
     Dosage: UNK; INCREASED DOSE IN AUGUST 2013 TO TREAT THE GOUT
     Route: 065
  14. TRIMETHOPRIM [Concomitant]
     Indication: URINARY TRACT INFECTION
     Dosage: UNK
     Route: 065
  15. IBUPROFEN [Concomitant]
     Indication: GOUT
     Dosage: UNK; STOPPED DUE TO IMPAIRED RENAL FUNCTION, PARACETAMOL SUBSTITUTED AS PAIN KILLER
     Route: 065
     Dates: start: 201308, end: 201308

REACTIONS (3)
  - Hepatitis [Fatal]
  - Convulsion [Not Recovered/Not Resolved]
  - Cardiac arrest [Not Recovered/Not Resolved]
